FAERS Safety Report 20338530 (Version 1)
Quarter: 2022Q1

REPORT INFORMATION
  Report Type: Spontaneous
  Country: US (occurrence: None)
  Receive Date: 20220116
  Receipt Date: 20220116
  Transmission Date: 20220423
  Serious: No
  Sender: FDA-Public Use
  Company Number: 2022A015687

PATIENT
  Sex: Male

DRUGS (2)
  1. FARXIGA [Suspect]
     Active Substance: DAPAGLIFLOZIN PROPANEDIOL
     Route: 048
  2. TRULICITY [Concomitant]
     Active Substance: DULAGLUTIDE

REACTIONS (3)
  - Blood glucose increased [Unknown]
  - Eating disorder [Unknown]
  - Inability to afford medication [Not Recovered/Not Resolved]
